FAERS Safety Report 8531437-7 (Version None)
Quarter: 2012Q3

REPORT INFORMATION
  Report Type: 
  Country: None (occurrence: None)
  Receive Date: 20120723
  Receipt Date: 20120712
  Transmission Date: 20120928
  Serious: Yes (Hospitalization, Other)
  Sender: FDA-Public Use
  Company Number: JP-VERTEX PHARMACEUTICALS INC.-AE-2012-006080

PATIENT
  Age: 62 Year
  Sex: Female

DRUGS (10)
  1. PEGINTERFERON ALFA-2B [Concomitant]
     Route: 058
     Dates: start: 20120223, end: 20120229
  2. RIBAVIRIN [Concomitant]
     Route: 048
     Dates: start: 20120216, end: 20120301
  3. TELAVIC (TELAPREVIR) [Suspect]
     Route: 048
     Dates: start: 20120221, end: 20120301
  4. RIBAVIRIN [Concomitant]
     Route: 048
     Dates: start: 20120101
  5. RIBAVIRIN [Concomitant]
     Route: 048
     Dates: start: 20120322, end: 20120613
  6. TELAVIC (TELAPREVIR) [Suspect]
     Indication: HEPATITIS C
     Route: 048
     Dates: start: 20120106, end: 20120220
  7. RIBAVIRIN [Concomitant]
     Indication: HEPATITIS C
     Route: 048
     Dates: start: 20120106, end: 20120215
  8. PEGINTERFERON ALFA-2B [Concomitant]
     Indication: HEPATITIS C
     Route: 058
     Dates: start: 20120106, end: 20120222
  9. PEGINTERFERON ALFA-2B [Concomitant]
     Route: 058
     Dates: start: 20120315
  10. TALION OD [Concomitant]
     Route: 048
     Dates: start: 20120105, end: 20120219

REACTIONS (4)
  - BRONCHITIS [None]
  - NAUSEA [None]
  - DECREASED APPETITE [None]
  - HAEMOGLOBIN DECREASED [None]
